FAERS Safety Report 5661278-X (Version None)
Quarter: 2008Q1

REPORT INFORMATION
  Report Type: 
  Country: None (occurrence: None)
  Receive Date: 20080312
  Receipt Date: 20080304
  Transmission Date: 20080703
  Serious: Yes (Hospitalization, Other)
  Sender: FDA-Public Use
  Company Number: D0056230A

PATIENT
  Age: 74 Year
  Sex: Female
  Weight: 59 kg

DRUGS (4)
  1. REQUIP [Suspect]
     Indication: RESTLESS LEGS SYNDROME
     Dosage: 1MG FOUR TIMES PER DAY
     Route: 048
     Dates: start: 20070501
  2. COAPROVEL [Concomitant]
     Indication: HYPERTENSION
     Dosage: 162.5MG PER DAY
     Route: 048
  3. CICLESONIDE [Concomitant]
     Indication: ASTHMA
     Dosage: 160UG AS REQUIRED
     Route: 055
  4. STILNOX [Concomitant]
     Indication: SLEEP DISORDER
     Dosage: 10MG PER DAY
     Route: 048

REACTIONS (7)
  - GASTROINTESTINAL EROSION [None]
  - ILEUS [None]
  - INTESTINAL FISTULA [None]
  - JEJUNECTOMY [None]
  - OFF LABEL USE [None]
  - PRETERNATURAL ANUS [None]
  - SMALL INTESTINE ULCER [None]
